FAERS Safety Report 19250945 (Version 1)
Quarter: 2021Q2

REPORT INFORMATION
  Report Type: Spontaneous
  Country: NI (occurrence: NI)
  Receive Date: 20210512
  Receipt Date: 20210512
  Transmission Date: 20210717
  Serious: Yes (Other)
  Sender: FDA-Public Use
  Company Number: NVSC2021NI017957

PATIENT
  Sex: Male

DRUGS (2)
  1. GLIVEC [Suspect]
     Active Substance: IMATINIB MESYLATE
     Dosage: 6 DF
     Route: 065
  2. GLIVEC [Suspect]
     Active Substance: IMATINIB MESYLATE
     Indication: GASTROINTESTINAL STROMAL TUMOUR
     Dosage: 1 DF
     Route: 065

REACTIONS (7)
  - Illness [Unknown]
  - Gait inability [Unknown]
  - Vomiting [Unknown]
  - Diarrhoea [Unknown]
  - Neoplasm [Unknown]
  - Asthenia [Unknown]
  - Malaise [Unknown]
